FAERS Safety Report 12116521 (Version 3)
Quarter: 2016Q2

REPORT INFORMATION
  Report Type: Report from Study
  Country: US (occurrence: US)
  Receive Date: 20160225
  Receipt Date: 20160404
  Transmission Date: 20160815
  Serious: Yes (Other)
  Sender: FDA-Public Use
  Company Number: US-GILEAD-2016-0200309

PATIENT
  Age: 73 Year
  Sex: Female
  Weight: 79.37 kg

DRUGS (12)
  1. ADCIRCA [Suspect]
     Active Substance: TADALAFIL
     Indication: PULMONARY HYPERTENSION
     Dosage: 20 MG, UNK
     Route: 048
     Dates: start: 20151204, end: 20160211
  2. AMBRISENTAN [Suspect]
     Active Substance: AMBRISENTAN
     Indication: PRODUCT USED FOR UNKNOWN INDICATION
     Dosage: 10 MG, QD
     Route: 048
     Dates: start: 20151202
  3. FISH OIL [Concomitant]
     Active Substance: FISH OIL
  4. BENADRYL [Concomitant]
     Active Substance: DIPHENHYDRAMINE HYDROCHLORIDE
  5. OXYGEN. [Concomitant]
     Active Substance: OXYGEN
  6. VITAMIN D                          /00107901/ [Concomitant]
     Active Substance: ERGOCALCIFEROL
  7. LEVAQUIN [Concomitant]
     Active Substance: LEVOFLOXACIN
  8. LASIX [Concomitant]
     Active Substance: FUROSEMIDE
  9. COMBIVENT [Concomitant]
     Active Substance: ALBUTEROL SULFATE\IPRATROPIUM BROMIDE
  10. MULTIVIT                           /07504101/ [Concomitant]
  11. LIPRO [Concomitant]
  12. MAGNESIUM [Concomitant]
     Active Substance: MAGNESIUM

REACTIONS (5)
  - Lethargy [Unknown]
  - Tinnitus [Recovered/Resolved]
  - Deafness [Recovered/Resolved]
  - Middle ear effusion [Unknown]
  - Fatigue [Unknown]

NARRATIVE: CASE EVENT DATE: 201601
